FAERS Safety Report 8628687 (Version 2)
Quarter: 2014Q1

REPORT INFORMATION
  Report Type: Spontaneous
  Country: US (occurrence: None)
  Receive Date: 20120323
  Receipt Date: 20130305
  Transmission Date: 20141002
  Serious: Yes (Hospitalization, Other)
  Sender: FDA-Public Use
  Company Number: 163-21880-11053499

PATIENT
  Age: 64 Year
  Sex: Male

DRUGS (5)
  1. REVLIMID [Suspect]
     Indication: PLASMA CELL MYELOMA
     Dosage: DAILY FOR 2 WEEKS ON, 1 WEEK OFF, REPEAT
     Route: 048
     Dates: start: 20110421, end: 201105
  2. VELCADE [Concomitant]
  3. DEXAMETHASONE (DEXAMETHASONE) [Concomitant]
  4. OXYCODONE (OXYCODONE) [Concomitant]
  5. LOVENOX [Concomitant]

REACTIONS (6)
  - Bronchitis [None]
  - Nausea [None]
  - Vomiting [None]
  - Dehydration [None]
  - Asthenia [None]
  - Constipation [None]
